FAERS Safety Report 8261763-0 (Version None)
Quarter: 2012Q2

REPORT INFORMATION
  Report Type: 
  Country: None (occurrence: None)
  Receive Date: 20120405
  Receipt Date: 20120329
  Transmission Date: 20120825
  Serious: No
  Sender: FDA-Public Use
  Company Number: US-PFIZER INC-2012081516

PATIENT
  Sex: Female

DRUGS (10)
  1. METHOTREXATE SODIUM [Suspect]
     Dosage: UNK
  2. ALBUTEROL [Suspect]
     Dosage: UNK
  3. LYRICA [Suspect]
     Dosage: UNK
  4. NITROGLYCERIN [Suspect]
     Dosage: UNK
  5. CATAFLAM [Suspect]
     Dosage: UNK
  6. POTASSIUM PENCILLIN G [Suspect]
     Dosage: UNK
  7. MOTRIN [Suspect]
  8. IMDUR [Suspect]
     Dosage: UNK
  9. ASPIRIN [Suspect]
     Dosage: UNK
  10. CLAVULANATE POTASSIUM [Suspect]
     Dosage: UNK

REACTIONS (1)
  - DRUG HYPERSENSITIVITY [None]
